FAERS Safety Report 5282620-8 (Version None)
Quarter: 2007Q1

REPORT INFORMATION
  Report Type: 
  Country: None (occurrence: None)
  Receive Date: 20070331
  Receipt Date: 20070322
  Transmission Date: 20070707
  Serious: Yes (Other)
  Sender: FDA-Public Use
  Company Number: GB-SHR-GB-2007-007006

PATIENT
  Age: 49 Year
  Sex: Female

DRUGS (7)
  1. FLUDARA [Suspect]
     Dosage: 24 MG/M2, 6 CYCLES
     Route: 048
  2. CYCLOPHOSPHAMIDE [Suspect]
     Dosage: 150 MG/M2,4 CYCLES
  3. RITUXIMAB [Suspect]
     Dosage: 375 MG/M2, 5 CYCLES
  4. CHLORAMBUCIL [Suspect]
  5. DOXORUBICIN HCL [Suspect]
  6. PREDNISONE [Suspect]
  7. VINCRISTINE [Suspect]

REACTIONS (2)
  - AUTOIMMUNE NEUTROPENIA [None]
  - STEM CELL TRANSPLANT [None]
